FAERS Safety Report 9074694 (Version 1)
Quarter: 2013Q1

REPORT INFORMATION
  Report Type: Report from Study
  Country: US (occurrence: US)
  Receive Date: 20130128
  Receipt Date: 20130128
  Transmission Date: 20140127
  Serious: No
  Sender: FDA-Public Use
  Company Number: US-ABBOTT-12P-163-0900002-00

PATIENT
  Age: 31 Year
  Sex: Male

DRUGS (13)
  1. HUMIRA 40 MG/0.8 ML PEN [Suspect]
     Indication: PSORIASIS
     Dates: start: 20111223
  2. WELLBUTRIN [Concomitant]
     Indication: ANXIETY
     Dosage: 1 TABLET DAILY
  3. LODINE [Concomitant]
     Indication: OSTEOARTHRITIS
  4. ALBUTEROL INHALER [Concomitant]
     Indication: ASTHMA
     Route: 055
  5. CLOBETASOL CREAM [Concomitant]
     Indication: PSORIASIS
     Dosage: 1 APPLICATION DAILY
     Route: 061
  6. 3% SALICYLIC ACID CREAM [Concomitant]
     Indication: PSORIASIS
     Route: 061
  7. MULTIVITAMIN [Concomitant]
     Indication: PRODUCT USED FOR UNKNOWN INDICATION
     Dosage: 1 TABLET DAILY
  8. VITAMIN C [Concomitant]
     Indication: PRODUCT USED FOR UNKNOWN INDICATION
     Dosage: DAILY
  9. MILK THISTLE [Concomitant]
     Indication: PRODUCT USED FOR UNKNOWN INDICATION
     Dosage: DAILY
  10. GLUCOSAMINE + CHONDROITIN WITH MSM [Concomitant]
     Indication: PRODUCT USED FOR UNKNOWN INDICATION
     Dosage: DAILY
  11. METAMUCIL [Concomitant]
     Indication: PRODUCT USED FOR UNKNOWN INDICATION
     Dosage: 6 CAPSULES DAILY
  12. HEMP OIL [Concomitant]
     Indication: PRODUCT USED FOR UNKNOWN INDICATION
     Dosage: 1 TEASPOON DAILY
  13. HIGH PROTEIN WHEY PROTEIN SHAKE [Concomitant]
     Indication: PRODUCT USED FOR UNKNOWN INDICATION
     Dosage: EVERY MORNING

REACTIONS (1)
  - Pruritus [Not Recovered/Not Resolved]
